FAERS Safety Report 24588659 (Version 1)
Quarter: 2024Q4

REPORT INFORMATION
  Report Type: Spontaneous
  Country: US (occurrence: US)
  Receive Date: 20241107
  Receipt Date: 20241107
  Transmission Date: 20250114
  Serious: No
  Sender: INSMED
  Company Number: US-INSMED, INC.-2024-03593-US

PATIENT
  Sex: Female

DRUGS (2)
  1. ARIKAYCE [Suspect]
     Active Substance: AMIKACIN
     Indication: Mycobacterial infection
     Dosage: 590 MILLIGRAM, QD
     Route: 055
     Dates: start: 20240905
  2. ARIKAYCE [Suspect]
     Active Substance: AMIKACIN
     Indication: Cystic fibrosis

REACTIONS (2)
  - Product administered to patient of inappropriate age [Unknown]
  - Off label use [Unknown]
